FAERS Safety Report 12750448 (Version 1)
Quarter: 2016Q3

REPORT INFORMATION
  Report Type: Spontaneous
  Country: US (occurrence: US)
  Receive Date: 20160916
  Receipt Date: 20160916
  Transmission Date: 20161109
  Serious: No
  Sender: FDA-Public Use
  Company Number: US-TEVA-687298ACC

PATIENT
  Sex: Female
  Weight: 81.27 kg

DRUGS (3)
  1. ALBUTEROL INHALER [Concomitant]
     Active Substance: ALBUTEROL
  2. PARAGARD T 380A [Suspect]
     Active Substance: COPPER
     Indication: CONTRACEPTION
     Dates: start: 20160725, end: 20160815
  3. ZOLOFT [Concomitant]
     Active Substance: SERTRALINE HYDROCHLORIDE

REACTIONS (3)
  - Vaginal haemorrhage [Unknown]
  - Vaginal discharge [Unknown]
  - Device expulsion [Recovered/Resolved]
